FAERS Safety Report 5267727-3 (Version None)
Quarter: 2007Q1

REPORT INFORMATION
  Report Type: 
  Country: None (occurrence: None)
  Receive Date: 20070316
  Receipt Date: 20070305
  Transmission Date: 20070707
  Serious: Yes (Hospitalization)
  Sender: FDA-Public Use
  Company Number: DE-PFIZER INC-2007006122

PATIENT
  Sex: Female
  Weight: 64 kg

DRUGS (3)
  1. LYRICA [Suspect]
     Indication: FIBROMYALGIA
     Route: 048
     Dates: start: 20061101, end: 20070121
  2. LEVOTHYROXINE SODIUM [Concomitant]
     Route: 048
  3. CONTRACEPTIVE, UNSPECIFIED [Concomitant]

REACTIONS (5)
  - ABDOMINAL DISTENSION [None]
  - ABDOMINAL PAIN UPPER [None]
  - DIZZINESS [None]
  - SUBILEUS [None]
  - VOMITING [None]
